FAERS Safety Report 17924861 (Version 1)
Quarter: 2020Q2

REPORT INFORMATION
  Report Type: Spontaneous
  Country: TH (occurrence: TH)
  Receive Date: 20200622
  Receipt Date: 20200622
  Transmission Date: 20200714
  Serious: Yes (Other)
  Sender: FDA-Public Use
  Company Number: NVSC2020TH171610

PATIENT
  Age: 48 Year
  Sex: Female

DRUGS (2)
  1. ZYKADIA [Suspect]
     Active Substance: CERITINIB
     Indication: PRODUCT USED FOR UNKNOWN INDICATION
     Dosage: 450 MG, UNK
     Route: 065
     Dates: start: 20200622
  2. ZYKADIA [Suspect]
     Active Substance: CERITINIB
     Dosage: 300 MG, QD (RESTART AFTER HOLDING CERTINIB)
     Route: 065

REACTIONS (14)
  - Brain oedema [Unknown]
  - Blood bicarbonate increased [Unknown]
  - Haemoglobin decreased [Unknown]
  - Blood alkaline phosphatase increased [Unknown]
  - Therapeutic response decreased [Unknown]
  - Neutrophil count increased [Unknown]
  - Haematocrit decreased [Unknown]
  - Metastases to central nervous system [Unknown]
  - Blood albumin decreased [Unknown]
  - Osteosclerosis [Unknown]
  - Aspartate aminotransferase increased [Unknown]
  - Lymphocyte count decreased [Unknown]
  - Monocyte count decreased [Unknown]
  - Alanine aminotransferase increased [Unknown]
